FAERS Safety Report 12568412 (Version 1)
Quarter: 2016Q3

REPORT INFORMATION
  Report Type: Report from Study
  Country: BR (occurrence: BR)
  Receive Date: 20160718
  Receipt Date: 20160718
  Transmission Date: 20161109
  Serious: Yes (Other)
  Sender: FDA-Public Use
  Company Number: PHHY2016BR094965

PATIENT
  Age: 58 Year
  Sex: Female
  Weight: 59 kg

DRUGS (1)
  1. FORASEQ [Suspect]
     Active Substance: BUDESONIDE\FORMOTEROL FUMARATE
     Indication: ASTHMA
     Dosage: 1 DF (BUDESONIDE 12 UG, FORMOTEROL FUMARATE 400 UG), Q12H
     Route: 055
     Dates: start: 201505

REACTIONS (21)
  - Hemiplegia [Unknown]
  - Spinal cord oedema [Unknown]
  - Abasia [Unknown]
  - Cartilage injury [Unknown]
  - Asthenia [Unknown]
  - Dyspnoea [Unknown]
  - Dysphonia [Unknown]
  - Malaise [Unknown]
  - Oropharyngeal pain [Unknown]
  - Cough [Unknown]
  - Intervertebral disc protrusion [Unknown]
  - Joint swelling [Unknown]
  - Memory impairment [Unknown]
  - Spinal cord injury [Unknown]
  - Dysstasia [Unknown]
  - Gait disturbance [Unknown]
  - Joint injury [Unknown]
  - Respiratory disorder [Unknown]
  - Fatigue [Unknown]
  - Pain [Unknown]
  - Anxiety [Unknown]

NARRATIVE: CASE EVENT DATE: 20160703
